FAERS Safety Report 25799354 (Version 1)
Quarter: 2025Q3

REPORT INFORMATION
  Report Type: Report from Study
  Country: US (occurrence: US)
  Receive Date: 20250913
  Receipt Date: 20250913
  Transmission Date: 20251020
  Serious: Yes (Other)
  Sender: UCB
  Company Number: US-UCBSA-2025055655

PATIENT

DRUGS (1)
  1. BIMEKIZUMAB [Suspect]
     Active Substance: BIMEKIZUMAB
     Indication: Product used for unknown indication

REACTIONS (3)
  - Psoriatic arthropathy [Unknown]
  - Loss of personal independence in daily activities [Unknown]
  - Adverse drug reaction [Unknown]
